FAERS Safety Report 5199060-2 (Version None)
Quarter: 2006Q4

REPORT INFORMATION
  Report Type: 
  Country: None (occurrence: None)
  Receive Date: 20060919
  Receipt Date: 20050812
  Transmission Date: 20070319
  Serious: Yes (Other)
  Sender: FDA-Public Use
  Company Number: HQWYE211303JUN05

PATIENT
  Age: 70 Year
  Sex: Female
  Weight: 83.99 kg

DRUGS (2)
  1. ADVIL [Suspect]
     Indication: HEADACHE
     Dosage: 2 CAPSULES, ONE TIME, ORAL
     Route: 048
     Dates: start: 20050527, end: 20050527
  2. NEXIUM [Concomitant]

REACTIONS (2)
  - GLOSSODYNIA [None]
  - TONGUE DISORDER [None]
